FAERS Safety Report 15580744 (Version 1)
Quarter: 2018Q4

REPORT INFORMATION
  Report Type: Spontaneous
  Country: US (occurrence: US)
  Receive Date: 20181104
  Receipt Date: 20181104
  Transmission Date: 20190205
  Serious: Yes (Life-Threatening, Other)
  Sender: FDA-Public Use
  Company Number: None

PATIENT
  Age: 30 Year
  Sex: Male
  Weight: 108 kg

DRUGS (1)
  1. BENZEDREX [Suspect]
     Active Substance: PROPYLHEXEDRINE
     Indication: PRODUCT USED FOR UNKNOWN INDICATION
     Dosage: ?          QUANTITY:1099 SPRAY(S);?
     Route: 055

REACTIONS (1)
  - Drug dependence [None]

NARRATIVE: CASE EVENT DATE: 20181101
